FAERS Safety Report 15689496 (Version 1)
Quarter: 2018Q4

REPORT INFORMATION
  Report Type: Spontaneous
  Country: DE (occurrence: DE)
  Receive Date: 20181205
  Receipt Date: 20181205
  Transmission Date: 20190205
  Serious: Yes (Other)
  Sender: FDA-Public Use
  Company Number: PHHY2018DE111746

PATIENT
  Sex: Female

DRUGS (2)
  1. VOTRIENT [Suspect]
     Active Substance: PAZOPANIB HYDROCHLORIDE
     Dosage: 400 MG, QD
     Route: 065
  2. VOTRIENT [Suspect]
     Active Substance: PAZOPANIB HYDROCHLORIDE
     Indication: UTERINE CANCER
     Dosage: 800 MG, QD
     Route: 065
     Dates: start: 201809

REACTIONS (9)
  - Metastases to kidney [Recovered/Resolved]
  - Bronchitis [Not Recovered/Not Resolved]
  - Renal haemorrhage [Recovered/Resolved]
  - Blood test abnormal [Unknown]
  - Tumour haemorrhage [Recovered/Resolved]
  - Metastases to liver [Unknown]
  - Product use in unapproved indication [Unknown]
  - Pyrexia [Unknown]
  - C-reactive protein increased [Recovering/Resolving]
